FAERS Safety Report 23921022 (Version 4)
Quarter: 2024Q3

REPORT INFORMATION
  Report Type: Spontaneous
  Country: US (occurrence: US)
  Receive Date: 20240530
  Receipt Date: 20240703
  Transmission Date: 20241017
  Serious: Yes (Life-Threatening)
  Sender: BAUSCH AND LOMB
  Company Number: US-BAUSCH-BL-2024-007942

PATIENT
  Age: 68 Year
  Sex: Male

DRUGS (2)
  1. MYSOLINE [Suspect]
     Active Substance: PRIMIDONE
     Indication: Seizure
     Dosage: ONE HALF IN THE MORNING, THE OTHER HALF IN THE EVENING AND A WHOLE TABLET AT NIGHT
     Route: 065
     Dates: start: 1982
  2. MYSOLINE [Suspect]
     Active Substance: PRIMIDONE
     Indication: Epilepsy

REACTIONS (6)
  - Bone marrow disorder [Unknown]
  - Incorrect dose administered [Unknown]
  - Product packaging quantity issue [Unknown]
  - Product quality issue [Unknown]
  - Physical product label issue [Unknown]
  - Wrong technique in product usage process [Unknown]

NARRATIVE: CASE EVENT DATE: 20240101
